FAERS Safety Report 20000348 (Version 1)
Quarter: 2021Q4

REPORT INFORMATION
  Report Type: Spontaneous
  Country: US (occurrence: US)
  Receive Date: 20211026
  Receipt Date: 20211026
  Transmission Date: 20220303
  Serious: No
  Sender: FDA-Public Use
  Company Number: US-SA-SAC20211019001036

PATIENT
  Age: 54 Year
  Sex: Female

DRUGS (1)
  1. DUPIXENT [Suspect]
     Active Substance: DUPILUMAB
     Indication: Asthma
     Dosage: 300 MG, QOW
     Route: 058
     Dates: start: 202109

REACTIONS (4)
  - Sunburn [Unknown]
  - Rash erythematous [Unknown]
  - Swollen tongue [Unknown]
  - Asthma [Unknown]

NARRATIVE: CASE EVENT DATE: 20210101
